FAERS Safety Report 16446825 (Version 2)
Quarter: 2020Q2

REPORT INFORMATION
  Report Type: Spontaneous
  Country: CA (occurrence: CA)
  Receive Date: 20190618
  Receipt Date: 20200401
  Transmission Date: 20200713
  Serious: Yes (Other)
  Sender: FDA-Public Use
  Company Number: CA-FERRINGPH-2019FE03555

PATIENT
  Age: 62 Year
  Sex: Male
  Weight: 58 kg

DRUGS (2)
  1. KEPPRA [Concomitant]
     Active Substance: LEVETIRACETAM
     Indication: EPILEPSY
     Dosage: 1000 MG, DAILY FROM APPROXIMATELY 15 YEARS
     Route: 065
  2. PICO-SALAX [Suspect]
     Active Substance: ANHYDROUS CITRIC ACID\MAGNESIUM OXIDE\SODIUM PICOSULFATE
     Indication: BOWEL PREPARATION
     Dosage: 1 DF, ONCE/SINGLE
     Route: 048

REACTIONS (4)
  - Paraesthesia [Unknown]
  - Seizure [Unknown]
  - Paraesthesia oral [Unknown]
  - Vomiting [Unknown]
